FAERS Safety Report 12784459 (Version 1)
Quarter: 2016Q3

REPORT INFORMATION
  Report Type: Spontaneous
  Country: FR (occurrence: FR)
  Receive Date: 20160927
  Receipt Date: 20160927
  Transmission Date: 20161109
  Serious: Yes (Hospitalization, Other)
  Sender: FDA-Public Use
  Company Number: FR-009507513-1609FRA012393

PATIENT
  Age: 28 Year
  Sex: Female

DRUGS (9)
  1. LEDERFOLINE [Concomitant]
     Active Substance: LEUCOVORIN CALCIUM
     Dosage: 1 DF( 1 DF, 1PER DAY)
     Route: 048
     Dates: start: 20160602
  2. TRUVADA [Suspect]
     Active Substance: EMTRICITABINE\TENOFOVIR DISOPROXIL FUMARATE
     Indication: HIV INFECTION
     Dosage: 1 DF (1DF, 1 PER DAY)
     Route: 048
     Dates: start: 20160618, end: 20160729
  3. RIFATER [Suspect]
     Active Substance: ISONIAZID\PYRAZINAMIDE\RIFAMPIN
     Indication: TUBERCULOSIS
     Dosage: 4 DF (4 DF, 1 PER DAY)
     Route: 048
     Dates: start: 20160602, end: 20160729
  4. PENTACARINAT [Concomitant]
     Active Substance: PENTAMIDINE ISETHIONATE
     Dosage: 0,0333 DF(1 DF AEROSOL, 1PER MONTH)
     Route: 055
     Dates: start: 20160721
  5. BECILAN [Concomitant]
     Active Substance: PYRIDOXINE
     Dosage: 1 DF (1DF, 1 PER DAY)
     Route: 048
     Dates: start: 20160602
  6. ISENTRESS [Suspect]
     Active Substance: RALTEGRAVIR POTASSIUM
     Indication: HIV INFECTION
     Dosage: 2 DF(1 DF, 2 PER DAY)
     Route: 048
     Dates: start: 20160618, end: 20160729
  7. ETHAMBUTOL [Suspect]
     Active Substance: ETHAMBUTOL HYDROCHLORIDE
     Indication: TUBERCULOSIS
     Dosage: 2 DF(4 DF, BID)
     Route: 048
     Dates: start: 20160602, end: 20160729
  8. ATARAX [Concomitant]
     Active Substance: HYDROXYZINE\HYDROXYZINE HYDROCHLORIDE
     Dosage: 1 DF (1DF, 1 PER DAY)
     Route: 048
     Dates: start: 20160602
  9. DEXERYL CREAM [Concomitant]
     Active Substance: GLYCERIN\PARAFFIN
     Dosage: 1 DF (1DF, 1PER DAY)
     Route: 003
     Dates: start: 20160602

REACTIONS (4)
  - Renal failure [Not Recovered/Not Resolved]
  - Haematuria [Not Recovered/Not Resolved]
  - Glycosuria [Not Recovered/Not Resolved]
  - Proteinuria [Not Recovered/Not Resolved]

NARRATIVE: CASE EVENT DATE: 20160728
